FAERS Safety Report 20485347 (Version 2)
Quarter: 2022Q3

REPORT INFORMATION
  Report Type: Spontaneous
  Country: US (occurrence: US)
  Receive Date: 20220217
  Receipt Date: 20220830
  Transmission Date: 20221027
  Serious: Yes (Death, Other)
  Sender: FDA-Public Use
  Company Number: US-TAKEDA-2022TUS011156

PATIENT

DRUGS (26)
  1. PROTONIX [Suspect]
     Active Substance: PANTOPRAZOLE SODIUM
     Indication: Gastrooesophageal reflux disease
     Dosage: 40 MILLIGRAM, QD
     Route: 048
     Dates: start: 2013, end: 2016
  2. PANTOPRAZOLE [Suspect]
     Active Substance: PANTOPRAZOLE
     Indication: Gastrooesophageal reflux disease
     Dosage: UNK
     Route: 048
     Dates: start: 2013
  3. PREVACID [Suspect]
     Active Substance: LANSOPRAZOLE
     Indication: Gastrooesophageal reflux disease
     Dosage: UNK
     Route: 048
     Dates: start: 1999, end: 2020
  4. PREVACID [Suspect]
     Active Substance: LANSOPRAZOLE
     Dosage: 30 MILLIGRAM, QD
     Route: 048
     Dates: start: 1999, end: 2022
  5. PRILOSEC [Suspect]
     Active Substance: OMEPRAZOLE MAGNESIUM
     Indication: Gastrooesophageal reflux disease
     Dosage: 20 MILLIGRAM, QD
     Route: 048
     Dates: start: 2000, end: 2022
  6. OMEPRAZOLE [Suspect]
     Active Substance: OMEPRAZOLE
     Indication: Gastrooesophageal reflux disease
     Dosage: 20 MILLIGRAM, QD
     Route: 048
     Dates: start: 2012, end: 2017
  7. ATORVASTATIN [Concomitant]
     Active Substance: ATORVASTATIN
     Indication: Blood cholesterol abnormal
     Dosage: UNK
     Dates: start: 2012
  8. ALLOPURINOL [Concomitant]
     Active Substance: ALLOPURINOL
     Indication: Gout
     Dosage: UNK
     Dates: start: 2010
  9. ALLOPURINOL [Concomitant]
     Active Substance: ALLOPURINOL
     Indication: Nephrolithiasis
  10. FUROSEMIDE [Concomitant]
     Active Substance: FUROSEMIDE
     Indication: Diuretic therapy
     Dosage: UNK
     Dates: start: 2015
  11. LASIX [Concomitant]
     Active Substance: FUROSEMIDE
     Indication: Oedema
     Dosage: UNK
  12. PLAVIX [Concomitant]
     Active Substance: CLOPIDOGREL BISULFATE
     Indication: Myocardial infarction
     Dosage: UNK
  13. AMOXICILLIN [Concomitant]
     Active Substance: AMOXICILLIN
     Indication: Infection
     Dosage: UNK
     Dates: start: 2005
  14. AMOXICILLIN [Concomitant]
     Active Substance: AMOXICILLIN
     Dosage: UNK
     Dates: start: 2007
  15. AMOXICILLIN [Concomitant]
     Active Substance: AMOXICILLIN
     Dosage: UNK
     Dates: start: 2013
  16. LISINOPRIL [Concomitant]
     Active Substance: LISINOPRIL
     Indication: Blood pressure abnormal
     Dosage: UNK
     Dates: start: 2006
  17. AZITHROMYCIN [Concomitant]
     Active Substance: AZITHROMYCIN
     Indication: Infection
     Dosage: UNK
     Dates: start: 2011
  18. DOXYCYCLINE [Concomitant]
     Active Substance: DOXYCYCLINE
     Indication: Infection
     Dosage: UNK
     Dates: start: 2000
  19. PROZAC [Concomitant]
     Active Substance: FLUOXETINE HYDROCHLORIDE
     Indication: Depression
     Dosage: UNK
     Dates: start: 1999, end: 2001
  20. ASPIRIN [Concomitant]
     Active Substance: ASPIRIN
     Indication: Pain
     Dosage: UNK
  21. FISH OIL [Concomitant]
     Active Substance: FISH OIL
     Indication: Routine health maintenance
     Dosage: UNK
  22. PEPCID [Concomitant]
     Active Substance: FAMOTIDINE
     Dosage: UNK
  23. RANITIDINE [Concomitant]
     Active Substance: RANITIDINE
     Dosage: UNK
     Dates: start: 2011
  24. TUMS [Concomitant]
     Active Substance: CALCIUM CARBONATE
     Dosage: UNK
  25. ALKA-SELTZER [Concomitant]
     Active Substance: ANHYDROUS CITRIC ACID\ASPIRIN\SODIUM BICARBONATE
     Dosage: UNK
  26. FLUOXETINE [Concomitant]
     Active Substance: FLUOXETINE HYDROCHLORIDE
     Indication: Depression
     Dosage: UNK
     Dates: start: 2001, end: 2006

REACTIONS (4)
  - Chronic kidney disease [Fatal]
  - Lung neoplasm malignant [Fatal]
  - Brain neoplasm malignant [Fatal]
  - Acute kidney injury [Unknown]

NARRATIVE: CASE EVENT DATE: 20060101
